FAERS Safety Report 9285525 (Version 1)
Quarter: 2013Q2

REPORT INFORMATION
  Report Type: Spontaneous
  Country: US (occurrence: None)
  Receive Date: 20130510
  Receipt Date: 20130510
  Transmission Date: 20140414
  Serious: Yes (Other)
  Sender: FDA-Public Use
  Company Number: None

PATIENT
  Age: 71 Year
  Sex: Female
  Weight: 115.6 kg

DRUGS (1)
  1. ALBUMIN [Suspect]
     Indication: HYPOTENSION
     Dosage: 25%
     Route: 042
     Dates: start: 20130507

REACTIONS (3)
  - Pruritus [None]
  - Urticaria [None]
  - Infusion related reaction [None]
